FAERS Safety Report 6263817-7 (Version None)
Quarter: 2009Q3

REPORT INFORMATION
  Report Type: 
  Country: None (occurrence: None)
  Receive Date: 20090710
  Receipt Date: 20070927
  Transmission Date: 20100115
  Serious: Yes (Other)
  Sender: FDA-Public Use
  Company Number: US-ASTRAZENECA-2006UW11191

PATIENT
  Age: 16828 Day
  Sex: Male
  Weight: 117.9 kg

DRUGS (50)
  1. SEROQUEL [Suspect]
     Route: 048
     Dates: start: 19970101, end: 20040101
  2. ABILIFY [Concomitant]
  3. HALDOL [Concomitant]
     Route: 048
     Dates: end: 19980206
  4. RISPERDAL [Concomitant]
  5. THORAZINE [Concomitant]
  6. ZYPREXA [Concomitant]
     Dosage: 10-20 MG
  7. COREG [Concomitant]
  8. NITROGLYCERIN [Concomitant]
     Dosage: 0.4 MG AS NEEDED
  9. SYNTHROID [Concomitant]
     Route: 048
  10. ASPIRIN [Concomitant]
  11. ALBUTEROL [Concomitant]
     Dosage: FOUR TIMES A DAY
  12. PROZAC [Concomitant]
     Dosage: 20-40 MG
     Route: 048
  13. LISINOPRIL [Concomitant]
  14. DEPAKOTE [Concomitant]
     Indication: SCHIZOPHRENIA
     Dosage: 50-750 MG
     Route: 048
  15. DEPAKOTE [Concomitant]
     Indication: MANIA
     Dosage: 50-750 MG
     Route: 048
  16. DEPAKOTE [Concomitant]
     Indication: BIPOLAR I DISORDER
     Dosage: 50-750 MG
     Route: 048
  17. LOPRESSOR [Concomitant]
     Route: 048
  18. WELLBUTRIN [Concomitant]
     Route: 048
  19. COLACE [Concomitant]
     Route: 048
  20. ASCORBIC ACID [Concomitant]
  21. VITAMIN E [Concomitant]
  22. ZOCOR [Concomitant]
     Dosage: 10-20 MG
  23. HYDROMORPHONE HCL [Concomitant]
  24. VICODIN [Concomitant]
  25. LIPITOR [Concomitant]
  26. ISOSORBIDE DINITRATE [Concomitant]
     Dosage: 5 MG 8 HOURS AS NEEDED
     Route: 048
  27. PEPCID [Concomitant]
     Route: 048
  28. TYLENOL [Concomitant]
     Dosage: 325-1000 MG
     Route: 048
  29. ZOLOFT [Concomitant]
     Dosage: 100-200 MG
  30. PERCOCET [Concomitant]
     Indication: PAIN
     Dosage: 1-2 TABLETS
     Route: 048
  31. ATARAX [Concomitant]
     Indication: ANXIETY
     Route: 048
  32. DOBUTREX [Concomitant]
  33. ATIVAN [Concomitant]
  34. RESTORIL [Concomitant]
     Dosage: 15-30 MG AT NIGHT AS NEEDED
     Route: 048
  35. BENADRYL [Concomitant]
  36. VALIUM [Concomitant]
  37. DIGOXIN [Concomitant]
  38. EFFEXOR [Concomitant]
  39. SERZONE [Concomitant]
  40. SONATA [Concomitant]
  41. SINGULAIR [Concomitant]
  42. AMARYL [Concomitant]
  43. VITAMIN B-12 [Concomitant]
  44. VITAMIN B-12 [Concomitant]
  45. HUMULIN R [Concomitant]
  46. VANCOMYCIN HCL [Concomitant]
     Dosage: 1000 MG 12 HOURS
     Route: 042
  47. GLYBURIDE [Concomitant]
  48. ACTOS [Concomitant]
  49. CLONAZEPAM [Concomitant]
     Indication: ANXIETY
     Route: 048
  50. COGENTIN [Concomitant]

REACTIONS (3)
  - DIABETES MELLITUS [None]
  - HYPOGLYCAEMIA [None]
  - RENAL FAILURE CHRONIC [None]
